FAERS Safety Report 4916119-2 (Version None)
Quarter: 2006Q1

REPORT INFORMATION
  Report Type: 
  Country: None (occurrence: None)
  Receive Date: 20060217
  Receipt Date: 20050511
  Transmission Date: 20060701
  Serious: Yes (Death)
  Sender: FDA-Public Use
  Company Number: US-MERCK-0505USA01496

PATIENT
  Age: 58 Year
  Sex: Male
  Weight: 125 kg

DRUGS (1)
  1. VIOXX [Suspect]
     Indication: ARTHRITIS
     Route: 048
     Dates: start: 19991208, end: 20030120

REACTIONS (3)
  - MYOCARDIAL INFARCTION [None]
  - NEPHROLITHIASIS [None]
  - STAPHYLOCOCCAL INFECTION [None]
